FAERS Safety Report 7383748-9 (Version None)
Quarter: 2011Q1

REPORT INFORMATION
  Report Type: 
  Country: None (occurrence: None)
  Receive Date: 20110330
  Receipt Date: 20110325
  Transmission Date: 20110831
  Serious: Yes (Other)
  Sender: FDA-Public Use
  Company Number: JP-JNJFOC-20110308171

PATIENT
  Age: 4 Year

DRUGS (7)
  1. DEPAKENE [Suspect]
     Indication: EPILEPSY
     Route: 065
  2. DANTRIUM [Suspect]
     Indication: PRODUCT USED FOR UNKNOWN INDICATION
     Route: 065
  3. PHENOBAL [Concomitant]
     Indication: EPILEPSY
     Route: 065
  4. TOPIRAMATE [Suspect]
     Indication: EPILEPSY
     Route: 048
  5. SEDIEL [Concomitant]
     Indication: SEDATION
     Route: 065
  6. TEGRETOL [Concomitant]
     Indication: EPILEPSY
     Route: 065
  7. LIORESAL [Suspect]
     Indication: PRODUCT USED FOR UNKNOWN INDICATION
     Route: 065

REACTIONS (1)
  - FRACTURE [None]
